FAERS Safety Report 9409910 (Version 1)
Quarter: 2013Q3

REPORT INFORMATION
  Report Type: Spontaneous
  Country: US (occurrence: US)
  Receive Date: 20130719
  Receipt Date: 20130719
  Transmission Date: 20140515
  Serious: Yes (Hospitalization)
  Sender: FDA-Public Use
  Company Number: US-SANOFI-AVENTIS-2013SA071965

PATIENT
  Age: 22 Year
  Sex: Female

DRUGS (2)
  1. AMBIEN CR [Suspect]
     Indication: INSOMNIA
     Route: 048
  2. ZOLPIDEM TARTRATE EXTENDED RELEASE - WINTHROP [Suspect]
     Indication: INSOMNIA
     Route: 065

REACTIONS (2)
  - Neuromyelitis optica [Not Recovered/Not Resolved]
  - Insomnia [Not Recovered/Not Resolved]
